FAERS Safety Report 8617106-3 (Version None)
Quarter: 2012Q3

REPORT INFORMATION
  Report Type: 
  Country: None (occurrence: None)
  Receive Date: 20120823
  Receipt Date: 20120817
  Transmission Date: 20120928
  Serious: Yes (Hospitalization, Other)
  Sender: FDA-Public Use
  Company Number: US-009507513-2011SP047492

PATIENT

DRUGS (2)
  1. NUVARING [Suspect]
     Indication: CONTRACEPTION
     Dosage: UNK
     Dates: start: 20071001, end: 20091001
  2. NUVARING [Suspect]
     Indication: MENSTRUATION IRREGULAR

REACTIONS (2)
  - DEEP VEIN THROMBOSIS [None]
  - DEPRESSION [None]
